FAERS Safety Report 9129305 (Version 1)
Quarter: 2013Q1

REPORT INFORMATION
  Report Type: Spontaneous
  Country: US (occurrence: US)
  Receive Date: 20130228
  Receipt Date: 20130228
  Transmission Date: 20140127
  Serious: Yes (Other)
  Sender: FDA-Public Use
  Company Number: US-ROCHE-1111250

PATIENT
  Age: 61 Year
  Sex: Female
  Weight: 77.18 kg

DRUGS (9)
  1. ACTEMRA [Suspect]
     Indication: RHEUMATOID ARTHRITIS
     Route: 042
     Dates: start: 20120821
  2. METHOTREXATE [Concomitant]
     Route: 065
  3. FOLIC ACID [Concomitant]
  4. RANITIDINE [Concomitant]
  5. IBUPROFEN [Concomitant]
  6. RESTASIS [Concomitant]
  7. CALCIUM CITRATE [Concomitant]
  8. VITAMIN B12 [Concomitant]
  9. CIMZIA [Concomitant]
     Route: 058

REACTIONS (5)
  - Lip swelling [Recovered/Resolved]
  - Throat tightness [Recovered/Resolved]
  - Oropharyngeal pain [Unknown]
  - Headache [Unknown]
  - Diarrhoea [Unknown]
